FAERS Safety Report 8714711 (Version 2)
Quarter: 2012Q4

REPORT INFORMATION
  Report Type: 
  Country: US (occurrence: US)
  Receive Date: 20120809
  Receipt Date: 20121226
  Transmission Date: 20130627
  Serious: Yes (Hospitalization, Disabling)
  Sender: FDA-Public Use
  Company Number: US-BAYER-2012-079044

PATIENT
  Age: 17 Year
  Sex: Female
  Weight: 63.49 kg

DRUGS (4)
  1. YAZ [Suspect]
     Indication: PREMENSTRUAL SYNDROME
     Dosage: UNK
     Dates: start: 200706, end: 201001
  2. MACROBID [Concomitant]
     Dosage: 100 mg, 1 BID
     Route: 048
  3. PYRIDIUM [Concomitant]
     Dosage: 200 mg, 1 TID
     Route: 048
  4. ZOFRAN [Concomitant]
     Indication: NAUSEA
     Dosage: 8 mg, 1 every 6 hours as needed

REACTIONS (9)
  - Cholelithiasis [None]
  - Biliary dyskinesia [None]
  - Injury [None]
  - Pain [None]
  - Deformity [None]
  - Anxiety [None]
  - Anhedonia [None]
  - Abdominal pain [None]
  - Nausea [None]
